FAERS Safety Report 12616259 (Version 1)
Quarter: 2016Q3

REPORT INFORMATION
  Report Type: Report from Study
  Country: GB (occurrence: GB)
  Receive Date: 20160802
  Receipt Date: 20160802
  Transmission Date: 20161109
  Serious: Yes (Other)
  Sender: FDA-Public Use
  Company Number: GB-ASTELLAS-2007001210

PATIENT
  Age: 79 Year
  Sex: Male

DRUGS (1)
  1. ERLOTINIB [Suspect]
     Active Substance: ERLOTINIB
     Indication: NON-SMALL CELL LUNG CANCER
     Route: 048
     Dates: start: 20070425, end: 20070619

REACTIONS (3)
  - Vision blurred [Not Recovered/Not Resolved]
  - Conjunctivitis [Not Recovered/Not Resolved]
  - Photophobia [Not Recovered/Not Resolved]

NARRATIVE: CASE EVENT DATE: 20070615
